FAERS Safety Report 8765313 (Version 2)
Quarter: 2013Q1

REPORT INFORMATION
  Report Type: Spontaneous
  Country: US (occurrence: US)
  Receive Date: 20120831
  Receipt Date: 20130109
  Transmission Date: 20140127
  Serious: No
  Sender: FDA-Public Use
  Company Number: US-009507513-1208USA008682

PATIENT
  Age: 24 Year
  Sex: Female
  Weight: 50.79 kg

DRUGS (1)
  1. NEXPLANON [Suspect]
     Indication: CONTRACEPTION
     Dosage: 1 ROD FOR 3 YEARS
     Route: 059
     Dates: start: 20120813

REACTIONS (5)
  - Device deployment issue [Unknown]
  - Device difficult to use [Unknown]
  - Product quality issue [Unknown]
  - Device misuse [Unknown]
  - No adverse event [Unknown]
